FAERS Safety Report 9688502 (Version 1)
Quarter: 2013Q4

REPORT INFORMATION
  Report Type: Spontaneous
  Country: US (occurrence: US)
  Receive Date: 20131114
  Receipt Date: 20131114
  Transmission Date: 20140711
  Serious: Yes (Other)
  Sender: FDA-Public Use
  Company Number: US-BAYER-2013-138239

PATIENT
  Sex: Female

DRUGS (3)
  1. BEYAZ [Suspect]
     Dosage: UNK
     Dates: start: 201102
  2. YAZ [Suspect]
     Dosage: UNK
     Dates: start: 201102
  3. YASMIN [Suspect]
     Dosage: UNK
     Dates: start: 201102

REACTIONS (4)
  - Cerebrovascular accident [None]
  - Injury [None]
  - Pain [None]
  - Emotional distress [None]
